FAERS Safety Report 6746668-6 (Version None)
Quarter: 2010Q2

REPORT INFORMATION
  Report Type: 
  Country: None (occurrence: None)
  Receive Date: 20100528
  Receipt Date: 20100521
  Transmission Date: 20101027
  Serious: Yes (Other)
  Sender: FDA-Public Use
  Company Number: MY-PFIZER INC-2010063819

PATIENT
  Age: 54 Year
  Sex: Female

DRUGS (3)
  1. NORVASC [Suspect]
     Indication: HYPERTENSION
     Dosage: 10 MG, 1X/DAY
     Route: 048
     Dates: start: 20081227, end: 20081227
  2. NIFEDIPINE [Concomitant]
  3. SALBUTAMOL [Concomitant]

REACTIONS (2)
  - DYSPNOEA [None]
  - FACE OEDEMA [None]
